FAERS Safety Report 9380198 (Version 3)
Quarter: 2014Q2

REPORT INFORMATION
  Report Type: Spontaneous
  Country: FR (occurrence: FR)
  Receive Date: 20130702
  Receipt Date: 20140423
  Transmission Date: 20141212
  Serious: Yes (Hospitalization)
  Sender: FDA-Public Use
  Company Number: PHHY2013FR067483

PATIENT
  Age: 49 Year
  Sex: Female

DRUGS (4)
  1. GILENYA [Suspect]
     Indication: MULTIPLE SCLEROSIS
     Dosage: UNK
     Route: 048
     Dates: start: 20120109, end: 201403
  2. GILENYA [Suspect]
     Dosage: 0.5 MG, BID
     Route: 048
     Dates: start: 201403
  3. FAMPYRA [Suspect]
     Indication: GAIT DISTURBANCE
     Dates: start: 20130513
  4. FAMPYRA [Suspect]
     Dosage: 10 MG, BID
     Route: 048
     Dates: end: 20130608

REACTIONS (2)
  - Status epilepticus [Unknown]
  - Generalised tonic-clonic seizure [Recovered/Resolved]
